FAERS Safety Report 7705355-8 (Version None)
Quarter: 2011Q3

REPORT INFORMATION
  Report Type: 
  Country: None (occurrence: None)
  Receive Date: 20110824
  Receipt Date: 20110816
  Transmission Date: 20111222
  Serious: Yes (Death, Hospitalization, Other)
  Sender: FDA-Public Use
  Company Number: CN-GENZYME-FLUD-1001282

PATIENT
  Sex: Female
  Weight: 45 kg

DRUGS (17)
  1. CYCLOPHOSPHAMIDE [Suspect]
     Indication: BONE MARROW CONDITIONING REGIMEN
  2. MYCOPHENOLATE MOFETIL [Concomitant]
     Indication: PROPHYLAXIS AGAINST GRAFT VERSUS HOST DISEASE
     Dosage: 20 UNK, TID, FROM DAYS 1 TO 22
     Route: 048
  3. CEFOPERAZONE W [Concomitant]
     Indication: PNEUMONIA
     Dosage: UNK
     Route: 065
     Dates: start: 20090616, end: 20090701
  4. CEFOPERAZONE W [Concomitant]
     Indication: PANCYTOPENIA
  5. FLUDARA [Suspect]
     Indication: APLASTIC ANAEMIA
     Dosage: 30 MG/M2, QD
     Route: 042
     Dates: start: 20090710, end: 20090713
  6. FLUDARA [Suspect]
     Indication: BONE MARROW CONDITIONING REGIMEN
  7. ATG FRESENIUS [Suspect]
     Indication: APLASTIC ANAEMIA
     Dosage: 10 MG/KG, QD
     Route: 042
     Dates: start: 20090714, end: 20090716
  8. CYCLOSPORINE [Concomitant]
     Indication: PROPHYLAXIS AGAINST GRAFT VERSUS HOST DISEASE
     Dosage: 3 UNK, QD FROM DAYS -1 TO 22
     Route: 042
  9. CEFOPERAZONE SODIUM [Concomitant]
     Indication: PNEUMONIA
     Dosage: UNK
     Route: 065
     Dates: start: 20090608, end: 20090615
  10. CYCLOPHOSPHAMIDE [Suspect]
     Indication: APLASTIC ANAEMIA
     Dosage: 300 MG/M2, QD
     Route: 042
     Dates: start: 20090711, end: 20090714
  11. AMIKACIN [Concomitant]
     Indication: PNEUMONIA
     Dosage: UNK
     Route: 065
     Dates: start: 20090608, end: 20090615
  12. VANCOMYCIN HCL [Concomitant]
     Indication: PANCYTOPENIA
  13. CEFOPERAZONE SODIUM [Concomitant]
     Indication: PANCYTOPENIA
  14. VANCOMYCIN HCL [Concomitant]
     Indication: PNEUMONIA
     Dosage: UNK
     Route: 065
     Dates: start: 20090616, end: 20090701
  15. ATG FRESENIUS [Suspect]
     Indication: BONE MARROW CONDITIONING REGIMEN
  16. AMIKACIN [Concomitant]
     Indication: PANCYTOPENIA
  17. GRANULOCYTE COLONY STIMULATING FACTOR [Concomitant]
     Indication: PANCYTOPENIA
     Dosage: UNK
     Route: 065
     Dates: start: 20090610, end: 20090701

REACTIONS (2)
  - INFECTION [None]
  - SERUM SICKNESS [None]
